FAERS Safety Report 23921586 (Version 3)
Quarter: 2024Q4

REPORT INFORMATION
  Report Type: Report from Study
  Country: US (occurrence: US)
  Receive Date: 20240530
  Receipt Date: 20241128
  Transmission Date: 20250114
  Serious: No
  Sender: ALEXION PHARMACEUTICALS
  Company Number: US-AstraZeneca-CH-00632313A

PATIENT

DRUGS (4)
  1. ULTOMIRIS [Suspect]
     Active Substance: RAVULIZUMAB-CWVZ
     Indication: Myasthenia gravis
     Dosage: UNK
     Route: 065
  2. ULTOMIRIS [Suspect]
     Active Substance: RAVULIZUMAB-CWVZ
     Dosage: UNK
  3. ULTOMIRIS [Suspect]
     Active Substance: RAVULIZUMAB-CWVZ
     Dosage: UNK
     Route: 065
  4. ULTOMIRIS [Suspect]
     Active Substance: RAVULIZUMAB-CWVZ
     Dosage: UNK

REACTIONS (10)
  - Joint dislocation [Recovered/Resolved]
  - Muscular weakness [Unknown]
  - Corrective lens user [Unknown]
  - Bronchitis chronic [Unknown]
  - Swelling [Unknown]
  - Diarrhoea [Unknown]
  - Muscle spasms [Unknown]
  - Insomnia [Unknown]
  - Eyelid ptosis [Unknown]
  - Fatigue [Unknown]
